FAERS Safety Report 10159688 (Version 1)
Quarter: 2014Q2

REPORT INFORMATION
  Report Type: Spontaneous
  Country: US (occurrence: US)
  Receive Date: 20140508
  Receipt Date: 20140508
  Transmission Date: 20141212
  Serious: No
  Sender: FDA-Public Use
  Company Number: US-GLAXOSMITHKLINE-A1021886A

PATIENT
  Age: 59 Year
  Sex: Female

DRUGS (3)
  1. TYKERB [Suspect]
     Indication: METASTASES TO LUNG
     Dosage: 1000MG PER DAY
     Route: 048
     Dates: start: 20130329, end: 20130405
  2. ZYRTEC [Concomitant]
  3. SYNTHROID [Concomitant]

REACTIONS (2)
  - Nausea [Unknown]
  - Decreased appetite [Unknown]
